FAERS Safety Report 24827101 (Version 2)
Quarter: 2025Q1

REPORT INFORMATION
  Report Type: Spontaneous
  Country: US (occurrence: US)
  Receive Date: 20250109
  Receipt Date: 20250219
  Transmission Date: 20250408
  Serious: No
  Sender: MYLAN
  Company Number: US-MYLANLABS-2024M1113834

PATIENT
  Age: 55 Year
  Sex: Female

DRUGS (1)
  1. LATANOPROST [Suspect]
     Active Substance: LATANOPROST
     Indication: Glaucoma
     Dosage: 1 GTT DROPS, HS (1 DROP INTO EACH EYE AT BEDTIME)
     Route: 047

REACTIONS (3)
  - Product colour issue [None]
  - Liquid product physical issue [None]
  - Product quality issue [None]

NARRATIVE: CASE EVENT DATE: 20241215
